FAERS Safety Report 16191877 (Version 2)
Quarter: 2019Q2

REPORT INFORMATION
  Report Type: Spontaneous
  Country: US (occurrence: BR)
  Receive Date: 20190412
  Receipt Date: 20190422
  Transmission Date: 20190711
  Serious: Yes (Other)
  Sender: FDA-Public Use
  Company Number: US-SUNOVION-2019SUN001469

PATIENT
  Sex: Male
  Weight: 74 kg

DRUGS (2)
  1. INDACATEROL [Suspect]
     Active Substance: INDACATEROL
     Indication: EMPHYSEMA
     Dosage: 300 UG, QD
     Route: 055
  2. FORASEQ [Suspect]
     Active Substance: BUDESONIDE\FORMOTEROL FUMARATE
     Indication: EMPHYSEMA
     Dosage: UNK UNK, BID (ONE IN MORNING AND 01 IN EVENING)
     Route: 055

REACTIONS (3)
  - Malaise [Unknown]
  - Lymphoma [Recovering/Resolving]
  - Hypoacusis [Unknown]

NARRATIVE: CASE EVENT DATE: 2014
